FAERS Safety Report 15781130 (Version 1)
Quarter: 2019Q1

REPORT INFORMATION
  Report Type: Report from Study
  Country: DE (occurrence: DE)
  Receive Date: 20190102
  Receipt Date: 20190102
  Transmission Date: 20190417
  Serious: Yes (Hospitalization, Other)
  Sender: FDA-Public Use
  Company Number: DE-SA-2017SA255186

PATIENT
  Age: 62 Year
  Sex: Male
  Weight: 70 kg

DRUGS (15)
  1. IRINOTECAN [Suspect]
     Active Substance: IRINOTECAN
     Indication: OFF LABEL USE
     Dosage: 326 MG,QOW
     Route: 042
     Dates: start: 20161107
  2. FOLINIC ACID [Suspect]
     Active Substance: LEUCOVORIN
     Indication: COLORECTAL CANCER
     Dosage: 362-364 MG, QOW
     Route: 042
     Dates: start: 20151228, end: 20161107
  3. FLUOROURACIL. [Suspect]
     Active Substance: FLUOROURACIL
     Dosage: 4344- 5792 MG, QOW
     Route: 040
     Dates: start: 20151228, end: 20160511
  4. PANTOPRAZOLE [Concomitant]
     Active Substance: PANTOPRAZOLE
     Dosage: 40 MG,QD
     Route: 048
     Dates: start: 20160619
  5. OXALIPLATIN. [Suspect]
     Active Substance: OXALIPLATIN
     Dosage: 122 MG AND 123.76 MG, QW
     Route: 042
     Dates: start: 20160815
  6. BEVACIZUMAB. [Suspect]
     Active Substance: BEVACIZUMAB
     Indication: COLORECTAL CANCER METASTATIC
     Dosage: 350 MG, QOW
     Route: 042
     Dates: start: 20151228, end: 20161024
  7. DEXAMETHASONE. [Concomitant]
     Active Substance: DEXAMETHASONE
     Indication: NAUSEA
     Dosage: 8 MG,UNK
     Route: 042
     Dates: start: 20151228
  8. ONDANSETRON [Concomitant]
     Active Substance: ONDANSETRON
     Indication: NAUSEA
     Dosage: 6 MG,QD
     Route: 042
     Dates: start: 20151228
  9. BEVACIZUMAB. [Suspect]
     Active Substance: BEVACIZUMAB
     Dosage: 355 MG, QOW
     Route: 042
     Dates: start: 20160404, end: 20161024
  10. IRINOTECAN [Suspect]
     Active Substance: IRINOTECAN
     Indication: COLORECTAL CANCER METASTATIC
     Dosage: 298.65 MG,QOW
     Route: 042
     Dates: start: 20151228, end: 20161107
  11. OXALIPLATIN. [Suspect]
     Active Substance: OXALIPLATIN
     Indication: COLORECTAL CANCER METASTATIC
     Dosage: 153.85 MG,QOW
     Route: 042
     Dates: start: 20151228, end: 20160509
  12. FLUOROURACIL. [Suspect]
     Active Substance: FLUOROURACIL
     Dosage: 724 MG, QOW (4344-5792 MG)
     Route: 040
     Dates: start: 20160829, end: 20161107
  13. PEGFILGRASTIM [Suspect]
     Active Substance: PEGFILGRASTIM
     Indication: NEUTROPENIA
     Dosage: 6 MG,QOW
     Route: 042
     Dates: start: 20151228
  14. OXALIPLATIN. [Suspect]
     Active Substance: OXALIPLATIN
     Dosage: 123.76 MG, 122 MG, QOW
     Route: 042
     Dates: start: 20160509, end: 20160815
  15. BISOPROLOL [Concomitant]
     Active Substance: BISOPROLOL
     Indication: HYPERTENSION
     Dosage: 5 MG,QD
     Route: 048

REACTIONS (3)
  - Off label use [Unknown]
  - Perihepatic abscess [Recovered/Resolved]
  - Liver abscess [Recovered/Resolved]

NARRATIVE: CASE EVENT DATE: 20160622
